FAERS Safety Report 8348960-0 (Version None)
Quarter: 2012Q2

REPORT INFORMATION
  Report Type: 
  Country: None (occurrence: None)
  Receive Date: 20120508
  Receipt Date: 20120427
  Transmission Date: 20120825
  Serious: Yes (Other)
  Sender: FDA-Public Use
  Company Number: 2012SP022593

PATIENT
  Age: 40 Year
  Sex: Female

DRUGS (6)
  1. MEDROL [Concomitant]
  2. FORADIL [Concomitant]
  3. AEROLIN /00139501/ [Concomitant]
  4. DESLORATADINE [Suspect]
     Indication: RHINITIS ALLERGIC
     Dosage: 5 MG;PO
     Route: 048
     Dates: start: 20120426, end: 20120426
  5. PULMICORT [Concomitant]
  6. SINGULAIR [Concomitant]

REACTIONS (1)
  - ANAPHYLACTIC SHOCK [None]
